FAERS Safety Report 10218267 (Version 2)
Quarter: 2014Q2

REPORT INFORMATION
  Report Type: Report from Study
  Country: US (occurrence: US)
  Receive Date: 20140605
  Receipt Date: 20140605
  Transmission Date: 20141212
  Serious: Yes (Hospitalization)
  Sender: FDA-Public Use
  Company Number: US-BIOGENIDEC-2013BI074895

PATIENT
  Age: 49 Year
  Sex: Male
  Weight: 173 kg

DRUGS (10)
  1. RFIXFC [Suspect]
     Indication: FACTOR IX DEFICIENCY
     Route: 042
     Dates: start: 20120310
  2. METHADONE [Concomitant]
  3. CARAFATE [Concomitant]
  4. LASIX [Concomitant]
  5. HYDRALAZINE [Concomitant]
  6. LOPRESSOR [Concomitant]
  7. PROZAC [Concomitant]
  8. ADVAIR [Concomitant]
     Dosage: DOSE UNIT:1
  9. DILAUDID [Concomitant]
  10. VENTOLIN [Concomitant]
     Dosage: DOSE UNIT:2

REACTIONS (1)
  - Renal failure acute [Recovered/Resolved]
